FAERS Safety Report 6501631-5 (Version None)
Quarter: 2009Q4

REPORT INFORMATION
  Report Type: 
  Country: None (occurrence: None)
  Receive Date: 20091216
  Receipt Date: 20091209
  Transmission Date: 20100525
  Serious: Yes (Hospitalization)
  Sender: FDA-Public Use
  Company Number: US-ELI_LILLY_AND_COMPANY-US200912002485

PATIENT
  Sex: Female

DRUGS (13)
  1. HUMULIN 70/30 [Suspect]
     Indication: DIABETES MELLITUS
     Dosage: 40 U, 3/D
     Dates: start: 20070101, end: 20091205
  2. LOPRESSOR [Concomitant]
  3. PREDNISONE [Concomitant]
     Dosage: 50 MG, UNK
  4. KLOR-CON [Concomitant]
     Dosage: UNK, DAILY (1/D)
  5. FLUXOTINE [Concomitant]
     Dosage: 20 MG, UNK
  6. NEURONTIN [Concomitant]
     Dosage: UNK, 3/D
     Route: 048
  7. METOPROLOL TARTRATE [Concomitant]
     Dosage: 25 MG, 2/D
  8. NITROGLYCERIN [Concomitant]
     Dosage: 4 MG, AS NEEDED
  9. OXYBUTYNIN CHLORIDE [Concomitant]
     Dosage: 5 MG, 2/D
  10. ISOSORBIDE [Concomitant]
     Dosage: UNK, 2/D
  11. PLAVIX [Concomitant]
     Indication: ANTICOAGULANT THERAPY
     Dosage: UNK, DAILY (1/D)
     Route: 048
  12. LORTAB [Concomitant]
     Dosage: UNK, AS NEEDED
  13. FUROSEMIDE [Concomitant]

REACTIONS (5)
  - BLOOD GLUCOSE DECREASED [None]
  - CEREBROVASCULAR ACCIDENT [None]
  - DYSARTHRIA [None]
  - HOSPITALISATION [None]
  - HYPOTENSION [None]
